APPROVED DRUG PRODUCT: EPHEDRINE SULFATE
Active Ingredient: EPHEDRINE SULFATE
Strength: 50MG/ML (50MG/ML)
Dosage Form/Route: SOLUTION;INTRAVENOUS
Application: A215825 | Product #001 | TE Code: AP
Applicant: XIROMED PHARMA ESPANA SL
Approved: Apr 21, 2022 | RLD: No | RS: No | Type: RX